FAERS Safety Report 13925616 (Version 1)
Quarter: 2017Q3

REPORT INFORMATION
  Report Type: Spontaneous
  Country: RU (occurrence: RU)
  Receive Date: 20170831
  Receipt Date: 20170831
  Transmission Date: 20171127
  Serious: Yes (Life-Threatening, Hospitalization)
  Sender: FDA-Public Use
  Company Number: RU-ASTRAZENECA-2017SE88544

PATIENT
  Age: 78 Year
  Sex: Male
  Weight: 80 kg

DRUGS (10)
  1. BRILINTA [Suspect]
     Active Substance: TICAGRELOR
     Indication: ANGINA UNSTABLE
     Route: 048
     Dates: start: 201608
  2. THROMBO ASS [Concomitant]
     Active Substance: ASPIRIN
     Dates: start: 201608
  3. FOKUSIN [Concomitant]
     Active Substance: TAMSULOSIN
     Dates: start: 201608
  4. AMLODIPIN [Concomitant]
     Active Substance: AMLODIPINE BESYLATE
     Dates: start: 201608
  5. METFORMIN [Concomitant]
     Active Substance: METFORMIN HYDROCHLORIDE
     Dates: start: 201608
  6. LORISTA [Concomitant]
     Active Substance: LOSARTAN POTASSIUM
     Dates: start: 201608
  7. BISOPROLOL [Concomitant]
     Active Substance: BISOPROLOL
     Dates: start: 201608
  8. LIPRIMAR [Concomitant]
     Active Substance: ATORVASTATIN CALCIUM
     Dates: start: 201608
  9. AVODART [Concomitant]
     Active Substance: DUTASTERIDE
     Dates: start: 201608
  10. DIABETON [Concomitant]
     Active Substance: GLICLAZIDE
     Dates: start: 201608

REACTIONS (1)
  - Chest pain [Not Recovered/Not Resolved]

NARRATIVE: CASE EVENT DATE: 201611
